FAERS Safety Report 11324750 (Version 1)
Quarter: 2015Q3

REPORT INFORMATION
  Report Type: Spontaneous
  Country: US (occurrence: US)
  Receive Date: 20150730
  Receipt Date: 20150730
  Transmission Date: 20151125
  Serious: No
  Sender: FDA-Public Use
  Company Number: US-IMPAX LABORATORIES, INC-2015-IPXL-00452

PATIENT
  Sex: Male
  Weight: 88 kg

DRUGS (4)
  1. RYTARY [Suspect]
     Active Substance: CARBIDOPA\LEVODOPA
     Dosage: ONE CAPSULE OF 195MG+ONE CAPSULE OF 145MG, TID
     Route: 048
     Dates: start: 201504
  2. RYTARY [Suspect]
     Active Substance: CARBIDOPA\LEVODOPA
     Dosage: TWO CAPSULE OF 195 MG, 3 /DAY
     Route: 048
  3. AMANTADINE [Concomitant]
     Active Substance: AMANTADINE
     Indication: PRODUCT USED FOR UNKNOWN INDICATION
     Dosage: 100 MG, 4 /DAY
     Route: 065
  4. RYTARY [Suspect]
     Active Substance: CARBIDOPA\LEVODOPA
     Indication: PARKINSON^S DISEASE
     Dosage: 195MG+95MG, TID
     Route: 048
     Dates: start: 20150326

REACTIONS (2)
  - Drug effect incomplete [Unknown]
  - Dyskinesia [Unknown]

NARRATIVE: CASE EVENT DATE: 20150405
